FAERS Safety Report 9061859 (Version 1)
Quarter: 2013Q1

REPORT INFORMATION
  Report Type: Spontaneous
  Country: CA (occurrence: CA)
  Receive Date: 20130204
  Receipt Date: 20130204
  Transmission Date: 20140127
  Serious: Yes (Disabling, Other)
  Sender: FDA-Public Use
  Company Number: PHHY2013CA008578

PATIENT
  Sex: Female

DRUGS (3)
  1. ACLASTA [Suspect]
     Indication: OSTEOPOROSIS
     Dosage: UNK UKN, UNK
     Route: 042
     Dates: start: 20120424
  2. CALCIUM [Concomitant]
     Dosage: 500 MG, BID
  3. VITAMIN D NOS [Concomitant]
     Dosage: 1200 IU, DAILY

REACTIONS (5)
  - Lumbar vertebral fracture [Recovering/Resolving]
  - Stress fracture [Recovering/Resolving]
  - Spinal compression fracture [Recovering/Resolving]
  - Scoliosis [Recovering/Resolving]
  - Atypical fracture [Unknown]
